FAERS Safety Report 12499131 (Version 1)
Quarter: 2016Q2

REPORT INFORMATION
  Report Type: Spontaneous
  Country: US (occurrence: None)
  Receive Date: 20160624
  Receipt Date: 20160624
  Transmission Date: 20160815
  Serious: Yes (Other)
  Sender: FDA-Public Use
  Company Number: None

PATIENT
  Age: 29 Year
  Sex: Female
  Weight: 58.97 kg

DRUGS (2)
  1. ZECUITY [Suspect]
     Active Substance: SUMATRIPTAN SUCCINATE
     Indication: MIGRAINE
     Dosage: 4 PATCH(ES) AS NEEDED APPLIED AS MEDICATED PATCH TO SKIN
     Dates: start: 20151230, end: 20160115
  2. NARATRIPTAN [Concomitant]
     Active Substance: NARATRIPTAN HYDROCHLORIDE

REACTIONS (2)
  - Application site burn [None]
  - Chemical injury [None]

NARRATIVE: CASE EVENT DATE: 20151230
